FAERS Safety Report 8623982 (Version 5)
Quarter: 2012Q4

REPORT INFORMATION
  Report Type: 
  Country: AR (occurrence: AR)
  Receive Date: 20120620
  Receipt Date: 20121213
  Transmission Date: 20130627
  Serious: Yes (Other)
  Sender: FDA-Public Use
  Company Number: AR-JNJFOC-20120404127

PATIENT
  Sex: Female

DRUGS (5)
  1. INFLIXIMAB, RECOMBINANT [Suspect]
     Indication: RHEUMATOID ARTHRITIS
     Dosage: 2 ampoules
     Route: 042
     Dates: start: 20111115
  2. INFLIXIMAB, RECOMBINANT [Suspect]
     Indication: RHEUMATOID ARTHRITIS
     Route: 042
     Dates: start: 20120131
  3. INFLIXIMAB, RECOMBINANT [Suspect]
     Indication: RHEUMATOID ARTHRITIS
     Route: 042
     Dates: start: 201202, end: 201202
  4. INFLIXIMAB, RECOMBINANT [Suspect]
     Indication: RHEUMATOID ARTHRITIS
     Route: 042
     Dates: start: 2010
  5. ALL OTHER THERAPEUTICS [Concomitant]
     Route: 065

REACTIONS (9)
  - Diabetes mellitus [Recovering/Resolving]
  - Cardiac disorder [Unknown]
  - Drug ineffective [Recovering/Resolving]
  - Ovarian disorder [Unknown]
  - Gastritis [Unknown]
  - Pain in extremity [Unknown]
  - Back pain [Unknown]
  - Inflammation [Unknown]
  - Pain [Recovered/Resolved]
